FAERS Safety Report 9355655 (Version 1)
Quarter: 2013Q2

REPORT INFORMATION
  Report Type: Spontaneous
  Country: ES (occurrence: ES)
  Receive Date: 20130619
  Receipt Date: 20130619
  Transmission Date: 20140414
  Serious: Yes (Other)
  Sender: FDA-Public Use
  Company Number: PHHY2013ES061657

PATIENT
  Sex: Male

DRUGS (1)
  1. GLIVEC [Suspect]

REACTIONS (1)
  - Intermittent claudication [Unknown]
